FAERS Safety Report 4676514-6 (Version None)
Quarter: 2005Q2

REPORT INFORMATION
  Report Type: 
  Country: None (occurrence: None)
  Receive Date: 20050525
  Receipt Date: 20050516
  Transmission Date: 20051028
  Serious: Yes (Hospitalization)
  Sender: FDA-Public Use
  Company Number: 2005059052

PATIENT
  Age: 30 Year
  Sex: Male
  Weight: 63.5 kg

DRUGS (1)
  1. SULFASALAZINE [Suspect]
     Indication: ANKYLOSING SPONDYLITIS
     Dosage: ORAL
     Route: 048
     Dates: start: 20050301

REACTIONS (3)
  - NIGHT SWEATS [None]
  - PHOTOSENSITIVITY REACTION [None]
  - RASH [None]
